FAERS Safety Report 6157644-9 (Version None)
Quarter: 2009Q2

REPORT INFORMATION
  Report Type: 
  Country: None (occurrence: None)
  Receive Date: 20090414
  Receipt Date: 20090414
  Transmission Date: 20091009
  Serious: Yes (Hospitalization, Other)
  Sender: FDA-Public Use
  Company Number: None

PATIENT
  Age: 62 Year
  Sex: Female
  Weight: 56.246 kg

DRUGS (1)
  1. BONIVA [Suspect]
     Dosage: MONTHLY
     Dates: start: 20090401, end: 20090401

REACTIONS (5)
  - ABDOMINAL PAIN [None]
  - ARTHRALGIA [None]
  - DIARRHOEA [None]
  - MOBILITY DECREASED [None]
  - MYALGIA [None]
